FAERS Safety Report 4788049-0 (Version None)
Quarter: 2005Q4

REPORT INFORMATION
  Report Type: 
  Country: None (occurrence: None)
  Receive Date: 20051004
  Receipt Date: 20051004
  Transmission Date: 20060501
  Serious: Yes (Hospitalization)
  Sender: FDA-Public Use
  Company Number: None

PATIENT
  Age: 58 Year
  Sex: Male

DRUGS (1)
  1. CELEBREX [Suspect]
     Indication: ANKLE FRACTURE
     Dosage: 200MG  BID  PO
     Route: 048
     Dates: start: 20031112, end: 20051001

REACTIONS (1)
  - RENAL FAILURE [None]
